FAERS Safety Report 15171975 (Version 1)
Quarter: 2018Q3

REPORT INFORMATION
  Report Type: Spontaneous
  Country: US (occurrence: US)
  Receive Date: 20180622
  Receipt Date: 20180622
  Transmission Date: 20181010
  Serious: No
  Sender: FDA-Public Use
  Company Number: None

PATIENT
  Age: 40 Year
  Sex: Male
  Weight: 135 kg

DRUGS (8)
  1. FLUTICASONE 50MCG NASAL SPRAY (120 METERED SPRAYS) [Suspect]
     Active Substance: FLUTICASONE PROPIONATE
     Indication: NASAL CONGESTION
     Dosage: ?          QUANTITY:120 METERED SPRAYS;?
     Route: 055
     Dates: start: 20180527, end: 20180622
  2. ASPIRIN. [Concomitant]
     Active Substance: ASPIRIN
  3. VENLAFAXINE [Concomitant]
     Active Substance: VENLAFAXINE HYDROCHLORIDE
  4. ROSUVASTATIN. [Concomitant]
     Active Substance: ROSUVASTATIN
  5. FLUTICASONE 50MCG NASAL SPRAY (120 METERED SPRAYS) [Suspect]
     Active Substance: FLUTICASONE PROPIONATE
     Indication: HYPERSENSITIVITY
     Dosage: ?          QUANTITY:120 METERED SPRAYS;?
     Route: 055
     Dates: start: 20180527, end: 20180622
  6. HYDROCHLOROTHIAZIDE. [Concomitant]
     Active Substance: HYDROCHLOROTHIAZIDE
  7. OMEPRAZOLE. [Concomitant]
     Active Substance: OMEPRAZOLE
  8. LISINOPRIL. [Concomitant]
     Active Substance: LISINOPRIL

REACTIONS (2)
  - Epistaxis [None]
  - Recalled product [None]

NARRATIVE: CASE EVENT DATE: 20180527
